FAERS Safety Report 10511443 (Version 1)
Quarter: 2014Q4

REPORT INFORMATION
  Report Type: Spontaneous
  Country: CA (occurrence: CA)
  Receive Date: 20141010
  Receipt Date: 20141010
  Transmission Date: 20150528
  Serious: Yes (Death, Hospitalization, Other)
  Sender: FDA-Public Use
  Company Number: CA-PFIZER INC-2014277298

PATIENT
  Age: 74 Year
  Sex: Female

DRUGS (8)
  1. MORPHINE SULFATE. [Suspect]
     Active Substance: MORPHINE SULFATE
     Dosage: 30 MG, EVERY 4 HRS
     Route: 065
  2. FUROSEMIDE. [Suspect]
     Active Substance: FUROSEMIDE
     Dosage: 40 MG, DAILY
     Route: 065
  3. MIRTAZAPINE. [Suspect]
     Active Substance: MIRTAZAPINE
     Dosage: 30 MG, DAILY
     Route: 065
  4. BISACODYL. [Suspect]
     Active Substance: BISACODYL
     Dosage: UNK
     Route: 065
  5. SODIUM PHOSPHATE [Suspect]
     Active Substance: SODIUM PHOSPHATE
     Dosage: UNK ML, DAILY
     Route: 065
  6. DIMENHYDRINATE. [Suspect]
     Active Substance: DIMENHYDRINATE
     Dosage: 50 MG, EVERY 4 HRS
     Route: 065
  7. DOCUSATE SODIUM. [Suspect]
     Active Substance: DOCUSATE SODIUM
     Dosage: UNK
     Route: 065
  8. LACTULOSE. [Suspect]
     Active Substance: LACTULOSE
     Dosage: UNK
     Route: 065

REACTIONS (18)
  - Delirium [Fatal]
  - Constipation [Fatal]
  - Myocardial infarction [Fatal]
  - Nausea [Fatal]
  - Hypokinesia [Fatal]
  - Abdominal distension [Fatal]
  - Abnormal behaviour [Fatal]
  - Gastrointestinal sounds abnormal [Fatal]
  - Intestinal obstruction [Fatal]
  - Colonic pseudo-obstruction [Fatal]
  - Somnolence [Fatal]
  - Mutism [Fatal]
  - Vomiting [Fatal]
  - Altered state of consciousness [Fatal]
  - Condition aggravated [Fatal]
  - Cognitive disorder [Fatal]
  - Urinary retention [Fatal]
  - Abdominal discomfort [Fatal]
